FAERS Safety Report 5259455-5 (Version None)
Quarter: 2007Q1

REPORT INFORMATION
  Report Type: 
  Country: None (occurrence: None)
  Receive Date: 20070305
  Receipt Date: 20070220
  Transmission Date: 20070707
  Serious: Yes (Hospitalization)
  Sender: FDA-Public Use
  Company Number: CLOF-10456

PATIENT
  Age: 41 Year
  Sex: Male

DRUGS (16)
  1. CLOFARABINE [Suspect]
     Indication: ACUTE MYELOID LEUKAEMIA
     Dosage: 44 MG DAILY IV
     Route: 042
     Dates: start: 20070201, end: 20070205
  2. IDARUBICIN HCL [Suspect]
     Indication: ACUTE LEUKAEMIA
     Dosage: 19.4 MG DAILY IV
     Route: 042
     Dates: start: 20070201, end: 20070203
  3. ATIVAN/BENADRYL/HALDOL [Concomitant]
  4. AMBISOME [Concomitant]
  5. AMIKACIN [Concomitant]
  6. AVANDIA [Concomitant]
  7. CEFEPIME [Concomitant]
  8. K-DUR 10 [Concomitant]
  9. LEVAQUIN [Concomitant]
  10. NASONEX [Concomitant]
  11. NIASPAN [Concomitant]
  12. PROTONIX [Concomitant]
  13. TRICOR [Concomitant]
  14. VALTREX [Concomitant]
  15. ZYRTEC [Concomitant]
  16. FLAGYL [Concomitant]

REACTIONS (2)
  - HAEMATOCHEZIA [None]
  - LOWER GASTROINTESTINAL HAEMORRHAGE [None]
